FAERS Safety Report 9263950 (Version 1)
Quarter: 2013Q1

REPORT INFORMATION
  Report Type: Spontaneous
  Country: US (occurrence: None)
  Receive Date: 20121212
  Receipt Date: 20121212
  Transmission Date: 20140127
  Serious: No
  Sender: FDA-Public Use
  Company Number: 1210USA008171

PATIENT
  Age: 58 Year
  Sex: Female

DRUGS (11)
  1. VICTRELIS [Suspect]
     Indication: HEPATITIS C
     Route: 048
     Dates: start: 201205
  2. PEGASYS [Suspect]
  3. RIBAVIRIN [Suspect]
  4. PREVACID (LANSOPRAZOLE) [Concomitant]
  5. HYDROCHLOROTHIAZIDE (+) LOSARTAN POTASSIUM (HYDROCHLOROTHIAZIDE, LOSARTAN POTASSIUM) [Concomitant]
  6. PRILOSEC [Concomitant]
  7. ROLAIDS (CALCIUM CARBONATE (+) MAGNESIUM HYDROXIDE) (CALCIUM CARBONATE, MAGNESIUM HYDROXIDE) [Concomitant]
  8. BONE MEAL (BONE MEAL) [Concomitant]
  9. VITAMIN D (UNSPECIFIED) (VITAMIN D (UNSPECIFIED)) [Concomitant]
  10. TYLENOL (ACETAMINOPHEN) [Concomitant]
  11. IBUPROFEN (IBUPROFEN) [Concomitant]

REACTIONS (4)
  - White blood cell count decreased [None]
  - Nausea [None]
  - Vomiting [None]
  - Rash [None]
